FAERS Safety Report 6104090-X (Version None)
Quarter: 2009Q1

REPORT INFORMATION
  Report Type: 
  Country: None (occurrence: None)
  Receive Date: 20090227
  Receipt Date: 20080305
  Transmission Date: 20090719
  Serious: Yes (Hospitalization)
  Sender: FDA-Public Use
  Company Number: 552272

PATIENT
  Age: 17 Year
  Sex: Female
  Weight: 45.4 kg

DRUGS (1)
  1. ACCUTANE [Suspect]
     Indication: ACNE
     Dates: start: 19940310, end: 19960101

REACTIONS (8)
  - CROHN'S DISEASE [None]
  - DEPRESSION [None]
  - HEADACHE [None]
  - HERPES ZOSTER [None]
  - INFLAMMATORY BOWEL DISEASE [None]
  - IRON DEFICIENCY ANAEMIA [None]
  - SINUSITIS [None]
  - VITAMIN B12 DEFICIENCY [None]
